FAERS Safety Report 14208629 (Version 1)
Quarter: 2017Q4

REPORT INFORMATION
  Report Type: Spontaneous
  Country: BR (occurrence: BR)
  Receive Date: 20171121
  Receipt Date: 20171121
  Transmission Date: 20180321
  Serious: Yes (Other)
  Sender: FDA-Public Use
  Company Number: BR-SHIRE-BR201729698

PATIENT

DRUGS (4)
  1. MESACOL (BETHANECHOL CHLORIDE) [Suspect]
     Active Substance: BETHANECHOL CHLORIDE
     Indication: COLITIS
     Dosage: UNK
     Route: 054
     Dates: start: 201705
  2. MESACOL MMX [Suspect]
     Active Substance: MESALAMINE
     Indication: COLITIS
     Dosage: UNK
     Route: 048
     Dates: start: 201705
  3. RINOSORO [Concomitant]
     Indication: PRODUCT USED FOR UNKNOWN INDICATION
  4. PREDNISONE. [Concomitant]
     Active Substance: PREDNISONE
     Indication: PRODUCT USED FOR UNKNOWN INDICATION

REACTIONS (2)
  - Diarrhoea [Not Recovered/Not Resolved]
  - Haematochezia [Not Recovered/Not Resolved]

NARRATIVE: CASE EVENT DATE: 201710
